FAERS Safety Report 4627378-8 (Version None)
Quarter: 2005Q2

REPORT INFORMATION
  Report Type: 
  Country: None (occurrence: None)
  Receive Date: 20050405
  Receipt Date: 20050325
  Transmission Date: 20051028
  Serious: Yes (Hospitalization)
  Sender: FDA-Public Use
  Company Number: 2005AD000019

PATIENT
  Age: 57 Year
  Sex: Male

DRUGS (1)
  1. KEFLEX [Suspect]
     Indication: DECUBITUS ULCER

REACTIONS (8)
  - ABDOMINAL PAIN [None]
  - DIARRHOEA [None]
  - GASTROINTESTINAL OEDEMA [None]
  - HAEMATOCHEZIA [None]
  - HAEMATURIA [None]
  - HENOCH-SCHONLEIN PURPURA [None]
  - PROTEINURIA [None]
  - SKIN NECROSIS [None]
